FAERS Safety Report 10159940 (Version 1)
Quarter: 2014Q2

REPORT INFORMATION
  Report Type: Spontaneous
  Country: US (occurrence: US)
  Receive Date: 20140508
  Receipt Date: 20140508
  Transmission Date: 20141212
  Serious: No
  Sender: FDA-Public Use
  Company Number: US-GLAXOSMITHKLINE-A1043309A

PATIENT
  Age: 63 Year
  Sex: Female

DRUGS (6)
  1. TYKERB [Suspect]
     Indication: BREAST CANCER
     Dosage: 1250MG PER DAY
     Route: 048
  2. XELODA [Suspect]
  3. LISINOPRIL [Concomitant]
  4. FEMARA [Concomitant]
  5. COUMADIN [Concomitant]
  6. CALTRATE [Concomitant]

REACTIONS (4)
  - Diarrhoea [Unknown]
  - Pain in extremity [Unknown]
  - Skin discolouration [Unknown]
  - Hyperaesthesia [Unknown]
